FAERS Safety Report 24240354 (Version 1)
Quarter: 2024Q3

REPORT INFORMATION
  Report Type: Report from Study
  Country: US (occurrence: US)
  Receive Date: 20240822
  Receipt Date: 20240822
  Transmission Date: 20241016
  Serious: Yes (Other)
  Sender: ABBVIE
  Company Number: US-ABBVIE-5855612

PATIENT
  Sex: Male
  Weight: 156.5 kg

DRUGS (1)
  1. SKYRIZI [Suspect]
     Active Substance: RISANKIZUMAB-RZAA
     Indication: Psoriasis
     Route: 058
     Dates: start: 20240329

REACTIONS (7)
  - Renal haemorrhage [Recovered/Resolved]
  - Vomiting [Not Recovered/Not Resolved]
  - Urinary tract infection [Recovered/Resolved]
  - Dysuria [Unknown]
  - Diarrhoea [Unknown]
  - Pyrexia [Unknown]
  - Urinary tract infection [Recovered/Resolved]

NARRATIVE: CASE EVENT DATE: 20240101
